FAERS Safety Report 5126943-1 (Version None)
Quarter: 2006Q4

REPORT INFORMATION
  Report Type: 
  Country: None (occurrence: None)
  Receive Date: 20061010
  Receipt Date: 20060928
  Transmission Date: 20070319
  Serious: Yes (Hospitalization)
  Sender: FDA-Public Use
  Company Number: 2006BI010512

PATIENT
  Age: 56 Year
  Sex: Female
  Weight: 78 kg

DRUGS (4)
  1. AVONEX [Suspect]
     Indication: MULTIPLE SCLEROSIS
     Dosage: 30 UG;QW;IM
     Route: 030
     Dates: start: 20040712, end: 20060701
  2. ATACAND HCT [Concomitant]
  3. BISOPROLOL FUMARATE [Concomitant]
  4. CANDESARTAN [Concomitant]

REACTIONS (2)
  - GAIT DISTURBANCE [None]
  - INFLUENZA LIKE ILLNESS [None]
